FAERS Safety Report 16373090 (Version 1)
Quarter: 2019Q2

REPORT INFORMATION
  Report Type: Spontaneous
  Country: CO (occurrence: CO)
  Receive Date: 20190530
  Receipt Date: 20190530
  Transmission Date: 20190711
  Serious: Yes (Other)
  Sender: FDA-Public Use
  Company Number: CO-BIOMARINAP-CO-2019-123803

PATIENT
  Sex: Male
  Weight: 27 kg

DRUGS (1)
  1. VIMIZIM [Suspect]
     Active Substance: ELOSULFASE ALFA
     Indication: MUCOPOLYSACCHARIDOSIS IV
     Dosage: 55 MILLIGRAM, QW
     Route: 042
     Dates: start: 20161227

REACTIONS (9)
  - Influenza [Unknown]
  - Nasal congestion [Unknown]
  - Dyspnoea [Unknown]
  - Malaise [Unknown]
  - Discomfort [Unknown]
  - Oxygen saturation decreased [Unknown]
  - Cough [Unknown]
  - Ill-defined disorder [Unknown]
  - Pyrexia [Unknown]
